FAERS Safety Report 4770348-X (Version None)
Quarter: 2005Q3

REPORT INFORMATION
  Report Type: 
  Country: None (occurrence: None)
  Receive Date: 20050915
  Receipt Date: 20050430
  Transmission Date: 20060218
  Serious: No
  Sender: FDA-Public Use
  Company Number: US-GLAXOSMITHKLINE-A0556826A

PATIENT
  Sex: Male

DRUGS (1)
  1. ABREVA [Suspect]

REACTIONS (3)
  - PRURITUS [None]
  - PRURITUS GENERALISED [None]
  - RASH MACULAR [None]
